FAERS Safety Report 15153808 (Version 1)
Quarter: 2018Q3

REPORT INFORMATION
  Report Type: Spontaneous
  Country: US (occurrence: US)
  Receive Date: 20180717
  Receipt Date: 20180717
  Transmission Date: 20181010
  Serious: Yes (Other)
  Sender: FDA-Public Use
  Company Number: US-SA-2018SA190851

PATIENT
  Age: 59 Year
  Sex: Female
  Weight: 90.26 kg

DRUGS (3)
  1. NEOSAR [Concomitant]
     Active Substance: CYCLOPHOSPHAMIDE
  2. TAXOTERE [Suspect]
     Active Substance: DOCETAXEL
     Dosage: 154.6 MG, Q3W
     Route: 042
     Dates: start: 20120425, end: 20120425
  3. TAXOTERE [Suspect]
     Active Substance: DOCETAXEL
     Dosage: 154.6 UNK
     Route: 042
     Dates: start: 20120627, end: 20120627

REACTIONS (1)
  - Alopecia [Recovering/Resolving]
